FAERS Safety Report 7740348-6 (Version None)
Quarter: 2011Q3

REPORT INFORMATION
  Report Type: 
  Country: None (occurrence: None)
  Receive Date: 20110909
  Receipt Date: 20110902
  Transmission Date: 20111222
  Serious: Yes (Other)
  Sender: FDA-Public Use
  Company Number: JP-B.I. PHARMACEUTICALS,INC./RIDGEFIELD-2011-BP-17103NB

PATIENT
  Age: 71 Year
  Sex: Male

DRUGS (5)
  1. LASIX [Concomitant]
     Indication: CARDIAC FAILURE
     Route: 065
  2. MASATON [Concomitant]
     Indication: HYPERURICAEMIA
     Route: 065
  3. PRADAXA [Suspect]
     Indication: ATRIAL FIBRILLATION
     Dosage: 220 MG
     Route: 048
     Dates: start: 20110501, end: 20110819
  4. MAIBASTAN [Concomitant]
     Indication: HYPERLIPIDAEMIA
     Route: 065
  5. LANIRAPID [Concomitant]
     Route: 065

REACTIONS (2)
  - HYPOAESTHESIA [None]
  - BRAIN NEOPLASM [None]
